FAERS Safety Report 17147627 (Version 1)
Quarter: 2019Q4

REPORT INFORMATION
  Report Type: Spontaneous
  Country: TR (occurrence: TR)
  Receive Date: 20191212
  Receipt Date: 20191212
  Transmission Date: 20200122
  Serious: Yes (Hospitalization)
  Sender: FDA-Public Use
  Company Number: TR-GUERBET-TR 2004 0005

PATIENT
  Sex: Female

DRUGS (1)
  1. LIPIODOL ULTRA-FLUIDE [Suspect]
     Active Substance: ETHIODIZED OIL
     Indication: HYSTEROSALPINGOGRAM
     Route: 065

REACTIONS (4)
  - Venous intravasation [Recovered/Resolved]
  - Cerebral artery embolism [Recovered/Resolved]
  - Off label use [Recovered/Resolved]
  - Pulmonary embolism [Recovered/Resolved]
